FAERS Safety Report 21339562 (Version 1)
Quarter: 2022Q3

REPORT INFORMATION
  Report Type: Spontaneous
  Country: US (occurrence: US)
  Receive Date: 20220915
  Receipt Date: 20220915
  Transmission Date: 20221026
  Serious: No
  Sender: FDA-Public Use
  Company Number: US-SA-SAC20220914000764

PATIENT
  Age: 40 Year
  Sex: Female
  Weight: 117 kg

DRUGS (1)
  1. DUPIXENT [Suspect]
     Active Substance: DUPILUMAB
     Indication: Nasal polyps
     Dosage: 300 MG, QOW
     Route: 058
     Dates: start: 20220824

REACTIONS (4)
  - Sinus headache [Recovered/Resolved]
  - Cough [Unknown]
  - Increased viscosity of upper respiratory secretion [Unknown]
  - Oral herpes [Unknown]

NARRATIVE: CASE EVENT DATE: 20220825
